FAERS Safety Report 5768375-9 (Version None)
Quarter: 2008Q2

REPORT INFORMATION
  Report Type: 
  Country: None (occurrence: None)
  Receive Date: 20080612
  Receipt Date: 20080314
  Transmission Date: 20081010
  Serious: No
  Sender: FDA-Public Use
  Company Number: US-ABBOTT-08P-163-0439563-00

PATIENT
  Sex: Female
  Weight: 44.038 kg

DRUGS (8)
  1. HUMIRA [Suspect]
     Indication: CROHN'S DISEASE
     Route: 058
     Dates: start: 20080205, end: 20080205
  2. HUMIRA [Suspect]
     Indication: RHEUMATOID ARTHRITIS
     Route: 058
     Dates: start: 20080219, end: 20080219
  3. HUMIRA [Suspect]
     Route: 058
  4. RIFAXIMIN [Suspect]
     Indication: DRUG USE FOR UNKNOWN INDICATION
  5. SLEEPING PILL [Concomitant]
     Indication: DRUG USE FOR UNKNOWN INDICATION
  6. FOLIC ACID [Concomitant]
     Indication: DRUG USE FOR UNKNOWN INDICATION
  7. CRYSTALLINE VIT B12 INJ [Concomitant]
     Indication: DRUG USE FOR UNKNOWN INDICATION
  8. B 6 [Concomitant]
     Indication: DRUG USE FOR UNKNOWN INDICATION

REACTIONS (25)
  - ABDOMINAL DISTENSION [None]
  - ACTIVITIES OF DAILY LIVING IMPAIRED [None]
  - ANAL INFLAMMATION [None]
  - ARTHRALGIA [None]
  - CROHN'S DISEASE [None]
  - CYST [None]
  - DIARRHOEA [None]
  - ERYTHEMA [None]
  - FATIGUE [None]
  - FLATULENCE [None]
  - HAEMATOMA [None]
  - HAEMORRHAGE [None]
  - INFLAMMATION [None]
  - INFREQUENT BOWEL MOVEMENTS [None]
  - INTESTINAL OBSTRUCTION [None]
  - INTESTINAL STENOSIS [None]
  - LOCALISED INFECTION [None]
  - MUSCLE SPASMS [None]
  - MUSCULOSKELETAL CHEST PAIN [None]
  - MYALGIA [None]
  - NODULE [None]
  - ORAL INTAKE REDUCED [None]
  - PAIN [None]
  - SLUGGISHNESS [None]
  - WEIGHT DECREASED [None]
